FAERS Safety Report 7776970-0 (Version None)
Quarter: 2011Q3

REPORT INFORMATION
  Report Type: 
  Country: None (occurrence: None)
  Receive Date: 20110926
  Receipt Date: 20110912
  Transmission Date: 20111222
  Serious: Yes (Other)
  Sender: FDA-Public Use
  Company Number: US-BAYER-2011-021240

PATIENT
  Age: 24 Year
  Sex: Female
  Weight: 73.923 kg

DRUGS (4)
  1. IBUPROFEN [Concomitant]
     Dosage: 800 MG, PRN
     Route: 048
     Dates: start: 20090620
  2. HYDROCODONE BITARTRATE AND ACETAMINOPHEN [Concomitant]
     Dosage: 500 MG, UNK
     Route: 048
     Dates: start: 20090620
  3. YASMIN [Suspect]
     Indication: ACNE
     Dosage: UNK
     Dates: start: 20061001, end: 20090901
  4. YASMIN [Suspect]
     Indication: CONTRACEPTION

REACTIONS (4)
  - MIGRAINE [None]
  - PAIN [None]
  - VASCULITIS CEREBRAL [None]
  - INJURY [None]
